FAERS Safety Report 21842253 (Version 1)
Quarter: 2023Q1

REPORT INFORMATION
  Report Type: Report from Study
  Country: US (occurrence: US)
  Receive Date: 20230110
  Receipt Date: 20230110
  Transmission Date: 20230417
  Serious: No
  Sender: FDA-Public Use
  Company Number: US-ABBVIE-4217006

PATIENT
  Age: 19 Year
  Sex: Female

DRUGS (3)
  1. SKYRIZI [Suspect]
     Active Substance: RISANKIZUMAB-RZAA
     Indication: Guttate psoriasis
     Dosage: DOSE EVERY 12 WEEKS THEREAFTER
     Route: 058
  2. SKYRIZI [Suspect]
     Active Substance: RISANKIZUMAB-RZAA
     Dosage: 1ST LOADING DOSE - WEEK 0?FIRST ADMIN DATE -OCT 2022?LAST ADMIN DATE -OCT 2022
     Route: 058
  3. SKYRIZI [Suspect]
     Active Substance: RISANKIZUMAB-RZAA
     Dosage: 2ND LOADING DOSE -WEEK 4 ?FIRST ADMIN DATE-24 NOV 2022?LAST ADMIN DATE-24 NOV 2022
     Route: 058

REACTIONS (2)
  - Off label use [Unknown]
  - Nasopharyngitis [Unknown]

NARRATIVE: CASE EVENT DATE: 20221001
